FAERS Safety Report 6581426 (Version 2)
Quarter: 2020Q3

REPORT INFORMATION
  Report Type: Report from Study
  Country: DE (occurrence: DE)
  Receive Date: 20080314
  Receipt Date: 20080418
  Transmission Date: 20201105
  Serious: Yes (Death)
  Sender: FDA-Public Use
  Company Number: DE-ABBOTT-08P-062-0441584-00

PATIENT
  Age: 71 Year
  Sex: Female

DRUGS (66)
  1. MELPERONE [Suspect]
     Active Substance: MELPERONE
     Dosage: INTRAGASTRAL
     Route: 048
     Dates: start: 20041030, end: 20041031
  2. LORAZEPAM. [Suspect]
     Active Substance: LORAZEPAM
     Indication: SLEEP DISORDER
     Dosage: INTRAGASTRAL
     Route: 048
     Dates: start: 20041014, end: 20041014
  3. CLOPIDOGREL BISULFATE. [Suspect]
     Active Substance: CLOPIDOGREL BISULFATE
     Indication: THROMBOSIS PROPHYLAXIS
     Dosage: INTRAGASTRAL
     Route: 048
     Dates: start: 20041005, end: 20041107
  4. KALINOR (POTASSIUM CHLORIDE) [Suspect]
     Active Substance: POTASSIUM CHLORIDE
     Dosage: INTRAGASTRAL
     Route: 048
     Dates: start: 20041025, end: 20041027
  5. METOCLOPRAMIDE. [Suspect]
     Active Substance: METOCLOPRAMIDE
     Indication: NAUSEA
     Dosage: INTRAGASTRAL
     Route: 048
     Dates: start: 20041025, end: 20041028
  6. SODIUM CHLORIDE. [Suspect]
     Active Substance: SODIUM CHLORIDE
     Indication: FLUID REPLACEMENT
     Route: 042
     Dates: start: 20041024, end: 20041027
  7. TORSEMIDE. [Suspect]
     Active Substance: TORSEMIDE
     Dosage: INTRAGASTRAL
     Route: 048
     Dates: start: 20041102, end: 20041105
  8. PIPERACILLIN AND TAZOBACTAM [Concomitant]
     Active Substance: PIPERACILLIN SODIUM\TAZOBACTAM SODIUM
     Indication: PRODUCT USED FOR UNKNOWN INDICATION
     Dates: start: 20041007, end: 20041015
  9. FLUCONAZOLE [Concomitant]
     Indication: PRODUCT USED FOR UNKNOWN INDICATION
     Route: 042
     Dates: start: 20041106, end: 20041110
  10. KLACID [Suspect]
     Active Substance: CLARITHROMYCIN
     Indication: PNEUMONIA
     Dosage: INTRAGASTRAL
     Route: 048
     Dates: start: 20041018, end: 20041024
  11. CARBAMAZEPINE. [Suspect]
     Active Substance: CARBAMAZEPINE
     Indication: AGITATION
     Dosage: INTRAGASTRAL
     Route: 048
     Dates: start: 20041101, end: 20041102
  12. ALLOPURINOL. [Suspect]
     Active Substance: ALLOPURINOL
     Indication: HYPERURICAEMIA
     Dosage: INTRAGASTRAL
     Route: 048
     Dates: start: 20041024, end: 20041102
  13. FUROSEMIDE. [Suspect]
     Active Substance: FUROSEMIDE
     Indication: POLYURIA
     Route: 042
     Dates: start: 20041102, end: 20041111
  14. POTASSIUM CHLORIDE. [Suspect]
     Active Substance: POTASSIUM CHLORIDE
     Dosage: INTRAGASTRAL
     Route: 048
     Dates: start: 20041023, end: 20041025
  15. TORSEMIDE. [Suspect]
     Active Substance: TORSEMIDE
     Indication: RENAL FAILURE
     Dosage: INTRAGASTRAL
     Route: 048
     Dates: start: 20041012, end: 20041031
  16. PROMETHAZINE HYDROCHLORIDE. [Concomitant]
     Active Substance: PROMETHAZINE HYDROCHLORIDE
     Indication: PRODUCT USED FOR UNKNOWN INDICATION
     Route: 042
     Dates: start: 20041105, end: 20041108
  17. POLYSPECTRAN TROPFEN [Concomitant]
     Indication: OCULAR HYPERAEMIA
     Dosage: RETROBULBAR
     Route: 057
     Dates: start: 20041108
  18. MELPERONE [Suspect]
     Active Substance: MELPERONE
     Indication: SLEEP DISORDER
     Dosage: INTRAGASTRAL
     Route: 048
     Dates: start: 20041102, end: 20041107
  19. PIPAMPERONE [Suspect]
     Active Substance: PIPAMPERONE
     Indication: CONFUSIONAL STATE
     Dosage: INTRAGASTRAL
     Route: 048
     Dates: start: 20041103, end: 20041104
  20. HYDROCHLOROTHIAZIDE. [Suspect]
     Active Substance: HYDROCHLOROTHIAZIDE
     Indication: ESSENTIAL HYPERTENSION
     Dosage: INTRAGASTRAL
     Route: 048
     Dates: start: 20041012, end: 20041031
  21. KALINOR (POTASSIUM CHLORIDE) [Suspect]
     Active Substance: POTASSIUM CHLORIDE
     Indication: HYPOKALAEMIA
     Dosage: INTRAGASTRAL
     Route: 048
     Dates: start: 20041101, end: 20041101
  22. DIMETHINDENE MALEATE [Suspect]
     Active Substance: DIMETHINDENE MALEATE
     Route: 042
     Dates: start: 20041105, end: 20041105
  23. UNACID [Concomitant]
     Indication: PRODUCT USED FOR UNKNOWN INDICATION
     Route: 042
     Dates: start: 20041106, end: 20041106
  24. CETIRIZINE HYDROCHLORIDE. [Concomitant]
     Active Substance: CETIRIZINE HYDROCHLORIDE
     Indication: PRODUCT USED FOR UNKNOWN INDICATION
     Dosage: INTRAGASTRAL
     Route: 048
     Dates: start: 20041110, end: 20041110
  25. PREDNICARBATE. [Concomitant]
     Active Substance: PREDNICARBATE
     Indication: SKIN DISORDER
     Route: 061
     Dates: start: 20041110, end: 20041110
  26. DIGITOXIN [Suspect]
     Active Substance: DIGITOXIN
     Indication: CARDIAC FAILURE
     Dosage: INTRAGASTRAL
     Route: 048
     Dates: start: 20041103, end: 20041111
  27. METOCLOPRAMIDE. [Suspect]
     Active Substance: METOCLOPRAMIDE
     Indication: VOMITING
     Dosage: INTRAGASTRAL
     Route: 048
     Dates: start: 20041023, end: 20041023
  28. POTASSIUM CHLORIDE. [Suspect]
     Active Substance: POTASSIUM CHLORIDE
     Route: 042
     Dates: start: 20041102, end: 20041104
  29. DIPYRONE [Suspect]
     Active Substance: DIPYRONE
     Indication: PRODUCT USED FOR UNKNOWN INDICATION
     Dosage: INTRAGASTRAL
     Route: 048
     Dates: start: 20041017, end: 20041017
  30. PARACETAMOL [Concomitant]
     Active Substance: ACETAMINOPHEN
     Indication: PRODUCT USED FOR UNKNOWN INDICATION
     Dates: start: 20041014, end: 20041014
  31. HALOPERIDOL. [Concomitant]
     Active Substance: HALOPERIDOL
     Indication: PRODUCT USED FOR UNKNOWN INDICATION
     Dosage: INTRAGASTRAL
     Route: 048
     Dates: start: 20041104, end: 20041105
  32. PREDNISOLONE SODIUM SUCCINATE [Concomitant]
     Active Substance: PREDNISOLONE SODIUM SUCCINATE
     Indication: PRODUCT USED FOR UNKNOWN INDICATION
     Route: 042
     Dates: start: 20041105, end: 20041110
  33. METOPROLOL SUCCINATE. [Suspect]
     Active Substance: METOPROLOL SUCCINATE
     Indication: ACUTE MYOCARDIAL INFARCTION
     Dosage: INTRAGASTRAL
     Route: 048
     Dates: start: 20041012, end: 20041031
  34. INSULIN LISPRO [Suspect]
     Active Substance: INSULIN LISPRO
     Indication: DIABETES MELLITUS
     Route: 058
     Dates: start: 20040729, end: 20041110
  35. BROTIZOLAM [Suspect]
     Active Substance: BROTIZOLAM
     Indication: SLEEP DISORDER
     Dosage: INTRAGASTRAL
     Route: 048
     Dates: start: 20041103, end: 20041103
  36. LOPERAMIDE [Suspect]
     Active Substance: LOPERAMIDE
     Indication: DIARRHOEA
     Dosage: INTRAGASTRAL
     Route: 048
     Dates: start: 20041031, end: 20041031
  37. POTASSIUM CHLORIDE. [Suspect]
     Active Substance: POTASSIUM CHLORIDE
     Route: 042
     Dates: start: 20041027, end: 20041027
  38. ATORVASTATIN CALCIUM. [Suspect]
     Active Substance: ATORVASTATIN CALCIUM
     Indication: HYPERCHOLESTEROLAEMIA
     Dosage: INTRAGASTRAL
     Route: 048
     Dates: start: 20040729, end: 20041102
  39. DIMETHINDENE MALEATE [Suspect]
     Active Substance: DIMETHINDENE MALEATE
     Indication: PRODUCT USED FOR UNKNOWN INDICATION
     Dates: start: 20041104, end: 20041107
  40. AMPHOTERICIN B. [Concomitant]
     Active Substance: AMPHOTERICIN B
     Indication: PRODUCT USED FOR UNKNOWN INDICATION
     Dosage: INTRAGASTRAL
     Route: 048
     Dates: start: 20041106, end: 20041110
  41. LORAZEPAM. [Suspect]
     Active Substance: LORAZEPAM
     Dosage: INTRAGASTRAL
     Route: 048
     Dates: start: 20041030, end: 20041030
  42. ACETYLSALICYLIC ACID [Suspect]
     Active Substance: ASPIRIN
     Indication: THROMBOSIS PROPHYLAXIS
     Dosage: INTRAGASTRAL
     Route: 048
     Dates: start: 20040927, end: 20041107
  43. ENOXAPARIN SODIUM. [Suspect]
     Active Substance: ENOXAPARIN SODIUM
     Indication: THROMBOSIS PROPHYLAXIS
     Route: 058
     Dates: start: 20041011, end: 20041128
  44. DIGITOXIN [Suspect]
     Active Substance: DIGITOXIN
     Dosage: INTRAGASTRAL
     Route: 048
     Dates: start: 20041014, end: 20041027
  45. FERROUS SULFATE. [Suspect]
     Active Substance: FERROUS SULFATE
     Indication: MINERAL SUPPLEMENTATION
     Dosage: INTRAGASTRAL
     Route: 048
     Dates: start: 20041103, end: 20041107
  46. FUROSEMIDE. [Suspect]
     Active Substance: FUROSEMIDE
     Dosage: INTRAGASTRAL
     Route: 048
     Dates: start: 20041101, end: 20041101
  47. CALCIUM ACETATE\MAGNESIUM ACETATE\POTASSIUM ACETATE [Suspect]
     Active Substance: CALCIUM ACETATE\MAGNESIUM ACETATE\POTASSIUM ACETATE
     Indication: FLUID REPLACEMENT
     Route: 042
     Dates: start: 20041002, end: 20041111
  48. BROTIZOLAM [Suspect]
     Active Substance: BROTIZOLAM
     Dosage: INTRAGASTRAL
     Route: 048
     Dates: start: 20041015, end: 20041024
  49. METOCLOPRAMIDE. [Suspect]
     Active Substance: METOCLOPRAMIDE
     Route: 042
     Dates: start: 20041024, end: 20041025
  50. METHIMAZOLE. [Suspect]
     Active Substance: METHIMAZOLE
     Indication: HYPERTHYROIDISM
     Dosage: INTRAGASTRAL
     Route: 048
     Dates: start: 20041006, end: 20041105
  51. PARACETAMOL [Concomitant]
     Active Substance: ACETAMINOPHEN
     Dates: start: 20041021, end: 20041021
  52. FLUNITRAZEPAM [Concomitant]
     Indication: PRODUCT USED FOR UNKNOWN INDICATION
     Route: 048
     Dates: start: 20041018, end: 20041018
  53. MORPHINE [Concomitant]
     Active Substance: MORPHINE
     Indication: PRODUCT USED FOR UNKNOWN INDICATION
     Route: 058
     Dates: start: 20041106, end: 20041109
  54. GLUCOSE, LIQUID [Suspect]
     Active Substance: GLUCOSE, LIQUID
     Route: 042
     Dates: start: 20041108, end: 20041108
  55. INSULIN GLARGINE [Suspect]
     Active Substance: INSULIN GLARGINE
     Indication: DIABETES MELLITUS
     Route: 058
     Dates: start: 20040729, end: 20041110
  56. RAMIPRIL. [Suspect]
     Active Substance: RAMIPRIL
     Dosage: INTRAGASTRAL
     Route: 048
     Dates: start: 20041101, end: 20041102
  57. DIGITOXIN [Concomitant]
     Active Substance: DIGITOXIN
     Indication: PRODUCT USED FOR UNKNOWN INDICATION
     Route: 042
     Dates: start: 20041106, end: 20041108
  58. LEVOFLOXACIN. [Concomitant]
     Active Substance: LEVOFLOXACIN
     Indication: PRODUCT USED FOR UNKNOWN INDICATION
     Route: 042
     Dates: start: 20041107, end: 20041110
  59. PANTOZOL [Suspect]
     Active Substance: PANTOPRAZOLE SODIUM
     Indication: PROPHYLAXIS AGAINST GASTROINTESTINAL ULCER
     Dosage: INTRAGASTRAL
     Route: 048
     Dates: start: 20041007, end: 20041031
  60. RAMIPRIL. [Suspect]
     Active Substance: RAMIPRIL
     Indication: ESSENTIAL HYPERTENSION
     Dosage: INTRAGASTRAL
     Route: 048
     Dates: start: 20041007, end: 20041031
  61. GLUCOSE, LIQUID [Suspect]
     Active Substance: GLUCOSE, LIQUID
     Indication: HYPOGLYCAEMIA
     Route: 042
     Dates: start: 20041102, end: 20041102
  62. SODIUM PERCHLORATE MONOHYDRATE [Suspect]
     Active Substance: SODIUM PERCHLORATE MONOHYDRATE
     Indication: HYPERTHYROIDISM
     Dosage: INTRAGASTRAL
     Route: 048
     Dates: start: 20041006, end: 20041105
  63. POTASSIUM CHLORIDE. [Suspect]
     Active Substance: POTASSIUM CHLORIDE
     Indication: HYPOKALAEMIA
     Dosage: INTRAGASTRAL
     Route: 048
     Dates: end: 20041104
  64. POTASSIUM CHLORIDE. [Suspect]
     Active Substance: POTASSIUM CHLORIDE
     Dosage: INTRAGASTRAL
     Route: 048
     Dates: start: 20041015, end: 20041020
  65. BROTIZOLAM [Suspect]
     Active Substance: BROTIZOLAM
     Dosage: INTRAGASTRAL
     Route: 048
     Dates: start: 20041110, end: 20041110
  66. METOPROLOL. [Suspect]
     Active Substance: METOPROLOL
     Indication: ESSENTIAL HYPERTENSION
     Dosage: INTRAGASTRAL
     Route: 048
     Dates: start: 20041101, end: 20041107

REACTIONS (9)
  - Stevens-Johnson syndrome [Fatal]
  - Purpura [Unknown]
  - Lip erosion [Unknown]
  - Conjunctivitis [Unknown]
  - Ocular hyperaemia [Unknown]
  - Pruritus [Unknown]
  - Swollen tongue [Unknown]
  - Nikolsky^s sign [Unknown]
  - Blister [Unknown]

NARRATIVE: CASE EVENT DATE: 20041104
